FAERS Safety Report 12308182 (Version 1)
Quarter: 2016Q2

REPORT INFORMATION
  Report Type: Spontaneous
  Country: US (occurrence: US)
  Receive Date: 20160426
  Receipt Date: 20160426
  Transmission Date: 20160815
  Serious: Yes (Other)
  Sender: FDA-Public Use
  Company Number: US-BION-20160033

PATIENT
  Age: 79 Year
  Sex: Female
  Weight: 79.38 kg

DRUGS (4)
  1. CALCITRIOL CAPSULES [Suspect]
     Active Substance: CALCITRIOL
     Indication: VITAMIN D DECREASED
     Route: 048
     Dates: start: 20141201, end: 20150630
  2. B12 SHOT [Concomitant]
     Dosage: B12 SHOT/MONTHLY
  3. VITAMINS [Concomitant]
     Active Substance: VITAMINS
     Dosage: DAILY
  4. PLAVIX [Concomitant]
     Active Substance: CLOPIDOGREL BISULFATE
     Indication: TRANSIENT ISCHAEMIC ATTACK
     Dosage: PLAVIX 75 MG/DAILY

REACTIONS (19)
  - Nocturia [Not Recovered/Not Resolved]
  - Abdominal pain [Not Recovered/Not Resolved]
  - Joint stiffness [Not Recovered/Not Resolved]
  - Vascular pain [Not Recovered/Not Resolved]
  - Abdominal pain upper [Not Recovered/Not Resolved]
  - Arrhythmia [Not Recovered/Not Resolved]
  - Arthralgia [Not Recovered/Not Resolved]
  - Sensory disturbance [Not Recovered/Not Resolved]
  - Visual impairment [Not Recovered/Not Resolved]
  - Asthenia [Not Recovered/Not Resolved]
  - Bone pain [Not Recovered/Not Resolved]
  - Transient ischaemic attack [Not Recovered/Not Resolved]
  - Muscular dystrophy [Not Recovered/Not Resolved]
  - Polyuria [Not Recovered/Not Resolved]
  - Dysgeusia [Not Recovered/Not Resolved]
  - Vasodilatation [Not Recovered/Not Resolved]
  - Myalgia [Not Recovered/Not Resolved]
  - Calcinosis [Not Recovered/Not Resolved]
  - Oral pain [Not Recovered/Not Resolved]
